FAERS Safety Report 20047217 (Version 1)
Quarter: 2021Q4

REPORT INFORMATION
  Report Type: Spontaneous
  Country: US (occurrence: US)
  Receive Date: 20211109
  Receipt Date: 20211109
  Transmission Date: 20220303
  Serious: No
  Sender: FDA-Public Use
  Company Number: US-GILEAD-2021-0554855

PATIENT
  Sex: Female

DRUGS (10)
  1. EPCLUSA [Suspect]
     Active Substance: SOFOSBUVIR\VELPATASVIR
     Indication: Hepatitis C
     Dosage: 1 DOSAGE FORM
     Route: 065
  2. AMITRIPTYLINE [Concomitant]
     Active Substance: AMITRIPTYLINE
  3. CLONAZEPAM [Concomitant]
     Active Substance: CLONAZEPAM
  4. MORPHINE [Concomitant]
     Active Substance: MORPHINE
  5. MOVANTIK [Concomitant]
     Active Substance: NALOXEGOL OXALATE
  6. QUETIAPINE [Concomitant]
     Active Substance: QUETIAPINE
  7. REMERON [Concomitant]
     Active Substance: MIRTAZAPINE
  8. SEROQUEL [Concomitant]
     Active Substance: QUETIAPINE FUMARATE
  9. TIZANIDINE [Concomitant]
     Active Substance: TIZANIDINE
  10. ZETIA [Concomitant]
     Active Substance: EZETIMIBE

REACTIONS (1)
  - Dyspepsia [Not Recovered/Not Resolved]
